FAERS Safety Report 15572312 (Version 1)
Quarter: 2018Q4

REPORT INFORMATION
  Report Type: Spontaneous
  Country: US (occurrence: US)
  Receive Date: 20181031
  Receipt Date: 20181031
  Transmission Date: 20190205
  Serious: No
  Sender: FDA-Public Use
  Company Number: US-MIST-TIR-2018-0110

PATIENT
  Sex: Female

DRUGS (5)
  1. TIROSINT [Suspect]
     Active Substance: LEVOTHYROXINE SODIUM
     Dosage: 100MCG DAILY EXCEPT FOR SUNDAYS
     Route: 048
  2. TIROSINT [Suspect]
     Active Substance: LEVOTHYROXINE SODIUM
     Dosage: 100MCG DAILY FOR FOUR DAYS AND SKIPS THE FIFTH DAY
     Route: 048
     Dates: start: 201712
  3. TIROSINT [Suspect]
     Active Substance: LEVOTHYROXINE SODIUM
     Indication: HYPOTHYROIDISM
     Route: 048
  4. TIROSINT [Suspect]
     Active Substance: LEVOTHYROXINE SODIUM
     Indication: HYPOTHYROIDISM
     Route: 048
     Dates: start: 2017
  5. SPLENDA [Suspect]
     Active Substance: SUCRALOSE
     Indication: PRODUCT USED FOR UNKNOWN INDICATION
     Dates: start: 201801

REACTIONS (6)
  - Feeling hot [Not Recovered/Not Resolved]
  - Weight increased [Unknown]
  - Drug level below therapeutic [Unknown]
  - Diarrhoea [Not Recovered/Not Resolved]
  - Drug level above therapeutic [Unknown]
  - Hyperhidrosis [Not Recovered/Not Resolved]

NARRATIVE: CASE EVENT DATE: 2017
